FAERS Safety Report 7123676-7 (Version None)
Quarter: 2010Q4

REPORT INFORMATION
  Report Type: 
  Country: None (occurrence: None)
  Receive Date: 20101125
  Receipt Date: 20101111
  Transmission Date: 20110411
  Serious: Yes (Other)
  Sender: FDA-Public Use
  Company Number: PHHY2010US77112

PATIENT
  Sex: Female

DRUGS (9)
  1. RECLAST [Suspect]
  2. ACTONEL [Suspect]
  3. ZESTRIL [Concomitant]
  4. XANAX [Concomitant]
  5. PERSANTINE [Concomitant]
     Dosage: 50 MG
  6. SAVELLA [Concomitant]
  7. LISINOPRIL [Concomitant]
  8. ALPRAZOLAM [Concomitant]
  9. HYDROCODONE [Concomitant]

REACTIONS (8)
  - ARTHRALGIA [None]
  - BONE PAIN [None]
  - DEPRESSION [None]
  - MYALGIA [None]
  - NERVOUSNESS [None]
  - PAIN IN EXTREMITY [None]
  - TRANSIENT ISCHAEMIC ATTACK [None]
  - WEIGHT DECREASED [None]
